FAERS Safety Report 16747803 (Version 1)
Quarter: 2019Q3

REPORT INFORMATION
  Report Type: Spontaneous
  Country: US (occurrence: US)
  Receive Date: 20190827
  Receipt Date: 20190827
  Transmission Date: 20191005
  Serious: Yes (Other)
  Sender: FDA-Public Use
  Company Number: PHEH2019US034857

PATIENT
  Age: 80 Year
  Sex: Female

DRUGS (1)
  1. JADENU [Suspect]
     Active Substance: DEFERASIROX
     Indication: HAEMOCHROMATOSIS
     Dosage: 810 MG, QD
     Route: 048
     Dates: start: 201906, end: 201908

REACTIONS (1)
  - Liver function test decreased [Unknown]

NARRATIVE: CASE EVENT DATE: 201908
